FAERS Safety Report 10399098 (Version 1)
Quarter: 2014Q3

REPORT INFORMATION
  Report Type: Spontaneous
  Country: DE (occurrence: DE)
  Receive Date: 20140821
  Receipt Date: 20140821
  Transmission Date: 20150326
  Serious: Yes (Hospitalization)
  Sender: FDA-Public Use
  Company Number: DE-ABBVIE-14P-062-1274548-00

PATIENT
  Age: 54 Year
  Sex: Male

DRUGS (6)
  1. VALPROIC ACID. [Suspect]
     Active Substance: VALPROIC ACID
     Indication: MENTAL DISORDER
     Dates: start: 201202
  2. METOPROLOL [Interacting]
     Active Substance: METOPROLOL
     Indication: HYPERTENSION
     Dates: start: 201202
  3. LORAZEPAM. [Interacting]
     Active Substance: LORAZEPAM
     Indication: MENTAL DISORDER
     Dates: start: 201202
  4. NORTRIPTYLINE [Interacting]
     Active Substance: NORTRIPTYLINE
     Indication: MENTAL DISORDER
     Dates: start: 201202
  5. QUETIAPINE FUMARATE. [Interacting]
     Active Substance: QUETIAPINE FUMARATE
     Indication: MENTAL DISORDER
     Dates: start: 201202
  6. TORASEMIDE [Interacting]
     Active Substance: TORSEMIDE
     Indication: POLYURIA
     Dates: start: 201202

REACTIONS (11)
  - Fall [Unknown]
  - Altered state of consciousness [Recovering/Resolving]
  - Dysarthria [Recovering/Resolving]
  - Drug level increased [Recovering/Resolving]
  - Somnolence [Recovering/Resolving]
  - Hyponatraemia [Recovering/Resolving]
  - Sedation [Unknown]
  - Inappropriate antidiuretic hormone secretion [Recovering/Resolving]
  - Radius fracture [Recovering/Resolving]
  - Speech disorder [Recovering/Resolving]
  - Drug interaction [Recovering/Resolving]

NARRATIVE: CASE EVENT DATE: 201204
